FAERS Safety Report 18940324 (Version 2)
Quarter: 2021Q1

REPORT INFORMATION
  Report Type: Spontaneous
  Country: US (occurrence: US)
  Receive Date: 20210225
  Receipt Date: 20210331
  Transmission Date: 20210420
  Serious: No
  Sender: FDA-Public Use
  Company Number: US-009507513-2102USA008406

PATIENT
  Age: 70 Year
  Sex: Female

DRUGS (2)
  1. ALBUTEROL SULFATE. [Suspect]
     Active Substance: ALBUTEROL SULFATE
     Indication: CHRONIC OBSTRUCTIVE PULMONARY DISEASE
     Dosage: UNK
     Dates: start: 202102
  2. ALBUTEROL SULFATE. [Suspect]
     Active Substance: ALBUTEROL SULFATE
     Indication: CHRONIC OBSTRUCTIVE PULMONARY DISEASE
     Dosage: 2 DOSAGE FORM, PRN
     Dates: start: 2020, end: 202102

REACTIONS (5)
  - Product delivery mechanism issue [Unknown]
  - Product dose omission issue [Unknown]
  - Device defective [Unknown]
  - Poor quality device used [Unknown]
  - Device use issue [Unknown]

NARRATIVE: CASE EVENT DATE: 202102
